FAERS Safety Report 6054708-5 (Version None)
Quarter: 2009Q1

REPORT INFORMATION
  Report Type: 
  Country: None (occurrence: None)
  Receive Date: 20090128
  Receipt Date: 20090121
  Transmission Date: 20090719
  Serious: Yes (Hospitalization)
  Sender: FDA-Public Use
  Company Number: US-ASTRAZENECA-2009UW01669

PATIENT
  Sex: Female

DRUGS (3)
  1. ARIMIDEX [Suspect]
     Route: 048
  2. TOPROL-XL [Suspect]
     Route: 048
  3. CRESTOR [Suspect]
     Route: 048

REACTIONS (4)
  - DENTAL CARIES [None]
  - HYPOAESTHESIA [None]
  - PARAESTHESIA [None]
  - PULSE ABSENT [None]
